FAERS Safety Report 9431513 (Version 1)
Quarter: 2013Q3

REPORT INFORMATION
  Report Type: Spontaneous
  Country: AU (occurrence: AU)
  Receive Date: 20130730
  Receipt Date: 20130730
  Transmission Date: 20140515
  Serious: Yes (Congenital Anomaly)
  Sender: FDA-Public Use
  Company Number: AU-MYLANLABS-2013S1016332

PATIENT
  Sex: Female

DRUGS (3)
  1. MORPHINE [Suspect]
     Indication: SEDATIVE THERAPY
     Dosage: 2.5-10 MG/H INFUSION
     Route: 064
  2. MIDAZOLAM [Suspect]
     Indication: AGITATION
     Dosage: 5-15 MG/H
     Route: 064
  3. TAMIFLU [Concomitant]
     Indication: H1N1 INFLUENZA
     Route: 064

REACTIONS (3)
  - Urinary bladder rupture [Recovered/Resolved]
  - Ascites [Recovered/Resolved]
  - Foetal exposure during pregnancy [Recovered/Resolved]
